FAERS Safety Report 6400456-9 (Version None)
Quarter: 2009Q4

REPORT INFORMATION
  Report Type: 
  Country: None (occurrence: None)
  Receive Date: 20091014
  Receipt Date: 20091009
  Transmission Date: 20100525
  Serious: Yes (Other)
  Sender: FDA-Public Use
  Company Number: US-EISAI INC.-E2080-00219-SPO-US

PATIENT
  Age: 50 Year
  Sex: Male

DRUGS (2)
  1. BANZEL [Suspect]
     Indication: DRUG USE FOR UNKNOWN INDICATION
     Dosage: UNKNOWN
     Route: 048
  2. BANZEL [Suspect]
     Dosage: TAPERED DOWN
     Route: 048

REACTIONS (1)
  - PARANOIA [None]
